FAERS Safety Report 13689480 (Version 2)
Quarter: 2017Q2

REPORT INFORMATION
  Report Type: Spontaneous
  Country: US (occurrence: US)
  Receive Date: 20170626
  Receipt Date: 20170627
  Transmission Date: 20170830
  Serious: Yes (Other)
  Sender: FDA-Public Use
  Company Number: US-ROCHE-1954146

PATIENT
  Age: 73 Year
  Sex: Female
  Weight: 66.7 kg

DRUGS (1)
  1. ACTIVASE [Suspect]
     Active Substance: ALTEPLASE
     Indication: CEREBROVASCULAR ACCIDENT
     Route: 042
     Dates: start: 20170427

REACTIONS (2)
  - Haemorrhagic transformation stroke [Recovered/Resolved with Sequelae]
  - Product quality issue [Unknown]

NARRATIVE: CASE EVENT DATE: 20170427
